FAERS Safety Report 13582008 (Version 5)
Quarter: 2018Q3

REPORT INFORMATION
  Report Type: Spontaneous
  Country: US (occurrence: US)
  Receive Date: 20170525
  Receipt Date: 20180830
  Transmission Date: 20181010
  Serious: Yes (Other)
  Sender: FDA-Public Use
  Company Number: US-PFIZER INC-2017228280

PATIENT
  Age: 59 Year
  Sex: Female
  Weight: 62 kg

DRUGS (4)
  1. IBRANCE [Suspect]
     Active Substance: PALBOCICLIB
     Indication: BREAST CANCER METASTATIC
     Dosage: 125 MG, CYCLIC (D 1?21 Q 28 DAYS)
     Route: 048
     Dates: start: 20170509, end: 20180814
  2. IBRANCE [Suspect]
     Active Substance: PALBOCICLIB
     Dosage: 125 MG, CYCLIC (DAYS 1?21 Q 28 DAYS)
     Route: 048
  3. IBRANCE [Suspect]
     Active Substance: PALBOCICLIB
     Dosage: 125 MG, CYCLIC (D 1?21 Q 28 DAYS)
  4. IBRANCE [Suspect]
     Active Substance: PALBOCICLIB
     Dosage: 125 MG, CYCLIC (D 1?21 Q 28 DAYS)
     Route: 048

REACTIONS (8)
  - Musculoskeletal chest pain [Not Recovered/Not Resolved]
  - Neoplasm progression [Unknown]
  - Abdominal distension [Unknown]
  - Pleural effusion [Unknown]
  - Abdominal pain [Unknown]
  - Drug dose omission [Unknown]
  - Hot flush [Unknown]
  - Dyspepsia [Unknown]
